FAERS Safety Report 16005501 (Version 1)
Quarter: 2019Q1

REPORT INFORMATION
  Report Type: Spontaneous
  Country: US (occurrence: US)
  Receive Date: 20190130
  Receipt Date: 20190130
  Transmission Date: 20190418
  Serious: Yes (Other)
  Sender: FDA-Public Use
  Company Number: None

PATIENT
  Age: 59 Year
  Sex: Female
  Weight: 58.97 kg

DRUGS (16)
  1. LEVOFLOXACIN. [Suspect]
     Active Substance: LEVOFLOXACIN
     Indication: SINUSITIS
     Dosage: ?          QUANTITY:1 TOOK 3 PILLS TOT;?
     Route: 048
     Dates: start: 20180102, end: 20180104
  2. METHYCOBALAMIN [Concomitant]
  3. OSTEOPRIME ULTRA BONE FORMULA [Concomitant]
  4. COD LIVER OIL [Concomitant]
     Active Substance: COD LIVER OIL
  5. MSM + C [Concomitant]
  6. VITAMIN D [Concomitant]
     Active Substance: CHOLECALCIFEROL
  7. MAGNESIUM [Concomitant]
     Active Substance: MAGNESIUM
  8. PROMETRIUM NATURTHYROID [Concomitant]
  9. METHYLGUARD PLUS [Concomitant]
  10. IODINE. [Concomitant]
     Active Substance: IODINE
  11. ERYTHROMYCIN. [Concomitant]
     Active Substance: ERYTHROMYCIN
  12. KRILL [Concomitant]
  13. KLAIR FACTOR 4 PROBIOTIC [Concomitant]
  14. ADRENAL PX DHEA [Concomitant]
  15. ENERGIZIN IRON [Concomitant]
  16. GI POWDER INULIN SIMILASE GFCF BREAST CYCLE BLEND DIM-PLUS PITUITARY [Concomitant]

REACTIONS (37)
  - Gastrointestinal haemorrhage [None]
  - Back pain [None]
  - Hyperhidrosis [None]
  - Weight decreased [None]
  - Condition aggravated [None]
  - Colitis [None]
  - Irritable bowel syndrome [None]
  - Joint noise [None]
  - Muscular weakness [None]
  - Diarrhoea [None]
  - Vision blurred [None]
  - Blood iron decreased [None]
  - Nightmare [None]
  - Thyroid disorder [None]
  - Pancreatic enzymes increased [None]
  - Disease recurrence [None]
  - Fear of death [None]
  - Paraesthesia [None]
  - Insomnia [None]
  - Amnesia [None]
  - Abnormal dreams [None]
  - Palpitations [None]
  - Fear of disease [None]
  - Drug intolerance [None]
  - Gastrointestinal ulcer [None]
  - Confusional state [None]
  - Dry skin [None]
  - Toothache [None]
  - Stress [None]
  - Treatment noncompliance [None]
  - Tendon pain [None]
  - Anxiety [None]
  - Abdominal pain [None]
  - Fatigue [None]
  - Hepatic enzyme increased [None]
  - Obsessive thoughts [None]
  - Alcohol intolerance [None]

NARRATIVE: CASE EVENT DATE: 20180103
